FAERS Safety Report 8782114 (Version 1)
Quarter: 2012Q4

REPORT INFORMATION
  Report Type: Report from Study
  Country: US (occurrence: US)
  Receive Date: 20120913
  Receipt Date: 20120913
  Transmission Date: 20130627
  Serious: No
  Sender: FDA-Public Use
  Company Number: US-VERTEX PHARMACEUTICAL INC.-AE-2012-008737

PATIENT

DRUGS (8)
  1. INCIVEK [Suspect]
     Indication: HEPATITIS C
     Route: 048
     Dates: start: 201203
  2. PEGASYS [Concomitant]
     Indication: HEPATITIS C
     Route: 058
     Dates: start: 201203
  3. PEGASYS [Concomitant]
     Route: 058
     Dates: start: 201203
  4. RIBASPHERE [Concomitant]
     Indication: HEPATITIS C
     Dates: start: 201206
  5. LEVETIRACETAM [Concomitant]
  6. CITALOPRAM HBR [Concomitant]
  7. CALCIUM + VITAMIN D [Concomitant]
  8. B-COMPLEX WITH VITAMIN C [Concomitant]

REACTIONS (6)
  - Neutropenia [Unknown]
  - Visual impairment [Unknown]
  - Feeling abnormal [Unknown]
  - Coordination abnormal [Unknown]
  - Rash [Unknown]
  - Anaemia [Unknown]
